FAERS Safety Report 20355641 (Version 3)
Quarter: 2022Q1

REPORT INFORMATION
  Report Type: Spontaneous
  Country: PL (occurrence: PL)
  Receive Date: 20220120
  Receipt Date: 20220131
  Transmission Date: 20220423
  Serious: Yes (Hospitalization, Other)
  Sender: FDA-Public Use
  Company Number: PL-NOVARTISPH-NVSC2022PL008821

PATIENT
  Age: 29 Year
  Sex: Female

DRUGS (6)
  1. ONDANSETRON [Interacting]
     Active Substance: ONDANSETRON
     Indication: Prophylaxis of nausea and vomiting
     Dosage: 16 MG, QD
     Route: 048
  2. BUPROPION HYDROCHLORIDE [Interacting]
     Active Substance: BUPROPION HYDROCHLORIDE
     Indication: Obesity
     Dosage: 150 MG, QD (THROUGH FIRST 6 DAYS)
     Route: 048
  3. BUPROPION HYDROCHLORIDE [Interacting]
     Active Substance: BUPROPION HYDROCHLORIDE
     Dosage: 300 MG, QD
     Route: 048
  4. VORTIOXETINE [Interacting]
     Active Substance: VORTIOXETINE
     Indication: Obesity
     Dosage: 10 MG, QD (TAKEN AFTER LAST MEAL)
     Route: 048
  5. SEMAGLUTIDE [Interacting]
     Active Substance: SEMAGLUTIDE
     Indication: Obesity
     Dosage: 0.5 MG, WEEKLY
     Route: 058
  6. BUPROPION HYDROCHLORIDE\NALTREXONE HYDROCHLORIDE [Interacting]
     Active Substance: BUPROPION HYDROCHLORIDE\NALTREXONE HYDROCHLORIDE
     Indication: Obesity
     Dosage: 2 TABLETS CONTAINING 8 MG OF NALTREXONE AND 90 MG OF BUPROPION PER DAY, AFTER LUNCH
     Route: 048

REACTIONS (1)
  - Serotonin syndrome [Recovering/Resolving]
